FAERS Safety Report 9593277 (Version 4)
Quarter: 2014Q3

REPORT INFORMATION
  Report Type: Spontaneous
  Country: US (occurrence: US)
  Receive Date: 20131004
  Receipt Date: 20140902
  Transmission Date: 20150326
  Serious: Yes (Hospitalization, Other)
  Sender: FDA-Public Use
  Company Number: US-009507513-1310USA000587

PATIENT
  Sex: Female
  Weight: 110.2 kg

DRUGS (2)
  1. NUVARING [Suspect]
     Active Substance: ETHINYL ESTRADIOL\ETONOGESTREL
     Indication: CONTRACEPTION
     Dosage: UNK
     Route: 067
     Dates: start: 20101118, end: 20101208
  2. ZOLOFT [Concomitant]
     Active Substance: SERTRALINE HYDROCHLORIDE
     Dosage: 50 MG, UNK
     Route: 048

REACTIONS (8)
  - Pre-eclampsia [Recovered/Resolved]
  - Pulmonary embolism [Unknown]
  - Protein S deficiency [Unknown]
  - Oligohydramnios [Unknown]
  - Caesarean section [Recovered/Resolved]
  - Deep vein thrombosis [Unknown]
  - Phlebitis superficial [Unknown]
  - Maternal exposure before pregnancy [Recovered/Resolved]

NARRATIVE: CASE EVENT DATE: 20101201
